FAERS Safety Report 6204495-2 (Version None)
Quarter: 2009Q2

REPORT INFORMATION
  Report Type: 
  Country: None (occurrence: None)
  Receive Date: 20090527
  Receipt Date: 20090515
  Transmission Date: 20091009
  Serious: Yes (Hospitalization)
  Sender: FDA-Public Use
  Company Number: JP-PFIZER INC-2009206863

PATIENT
  Age: 58 Year

DRUGS (12)
  1. SUNITINIB MALATE [Suspect]
     Indication: HEPATIC NEOPLASM MALIGNANT
     Dosage: 37.5 MG, 1X/DAY
     Route: 048
     Dates: start: 20090416, end: 20090427
  2. FUROSEMIDE [Concomitant]
     Dosage: UNK
     Route: 048
  3. AMINO ACIDS [Concomitant]
     Indication: HEPATIC CIRRHOSIS
     Dosage: UNK
     Route: 048
  4. INSULIN ASPART [Concomitant]
     Indication: DIABETES MELLITUS
     Dosage: UNK
     Route: 058
  5. CALCIUM LACTATE [Concomitant]
     Dosage: UNK
     Route: 048
  6. MULTIPLE VITAMINS [Concomitant]
     Dosage: UNK
     Route: 048
  7. FAMOTIDINE [Concomitant]
     Indication: PORTAL HYPERTENSIVE GASTROPATHY
     Dosage: UNK
     Route: 048
  8. FAMOTIDINE [Concomitant]
     Indication: GASTRITIS ATROPHIC
  9. NUTRITIONAL SUPPLEMENT [Concomitant]
     Indication: HEPATIC FAILURE
     Route: 042
  10. TRANEXAMIC ACID [Concomitant]
     Route: 042
  11. STRONG NEO-MINOPHAGEN C [Concomitant]
     Route: 042
  12. ELECTROLYTE SOLUTIONS [Concomitant]
     Route: 042

REACTIONS (1)
  - HEPATIC ENCEPHALOPATHY [None]
